FAERS Safety Report 25320304 (Version 6)
Quarter: 2025Q4

REPORT INFORMATION
  Report Type: Spontaneous
  Country: US (occurrence: US)
  Receive Date: 20250515
  Receipt Date: 20251224
  Transmission Date: 20260117
  Serious: No
  Sender: BRISTOL-MYERS SQUIBB COMPANY
  Company Number: US-BRISTOL-MYERS SQUIBB COMPANY-2025-070521

PATIENT
  Age: 73 Year
  Sex: Female

DRUGS (3)
  1. REVLIMID [Suspect]
     Active Substance: LENALIDOMIDE
     Indication: Diffuse large B-cell lymphoma
     Route: 048
  2. REVLIMID [Suspect]
     Active Substance: LENALIDOMIDE
     Route: 048
  3. REVLIMID [Suspect]
     Active Substance: LENALIDOMIDE
     Dosage: QD FOR 21 DAYS
     Route: 048

REACTIONS (8)
  - Pruritus [Recovered/Resolved]
  - Product dose omission issue [Unknown]
  - Off label use [Unknown]
  - Bronchitis [Unknown]
  - Diarrhoea [Unknown]
  - Seasonal allergy [Unknown]
  - Rhinorrhoea [Unknown]
  - Gout [Unknown]
